FAERS Safety Report 7085995-2 (Version None)
Quarter: 2010Q4

REPORT INFORMATION
  Report Type: 
  Country: None (occurrence: None)
  Receive Date: 20101027
  Receipt Date: 20101015
  Transmission Date: 20110411
  Serious: Yes (Hospitalization, Other)
  Sender: FDA-Public Use
  Company Number: 10-097

PATIENT
  Age: 65 Year
  Sex: Male
  Weight: 95.2554 kg

DRUGS (2)
  1. DIVALPROEX SODIUM [Suspect]
     Indication: EPILEPSY
     Dosage: 2000 MG; QD
     Dates: start: 20100801
  2. DOXAZOSIN [Concomitant]

REACTIONS (4)
  - GRAND MAL CONVULSION [None]
  - HEAD INJURY [None]
  - HEADACHE [None]
  - PRODUCT SUBSTITUTION ISSUE [None]
